FAERS Safety Report 4569946-8 (Version None)
Quarter: 2005Q1

REPORT INFORMATION
  Report Type: 
  Country: None (occurrence: None)
  Receive Date: 20050204
  Receipt Date: 20050124
  Transmission Date: 20050727
  Serious: Yes (Other)
  Sender: FDA-Public Use
  Company Number: US-JNJFOC-20040901872

PATIENT
  Sex: Female
  Weight: 80.74 kg

DRUGS (8)
  1. REMICADE [Suspect]
     Route: 042
  2. REMICADE [Suspect]
     Indication: RHEUMATOID ARTHRITIS
     Dosage: FIRST DOSE
     Route: 042
  3. METHOTREXATE [Concomitant]
  4. PREDNISONE [Concomitant]
  5. SYNTHROID [Concomitant]
  6. FOLIC ACID [Concomitant]
  7. MULTIVITAMIN [Concomitant]
  8. HORMONES [Concomitant]

REACTIONS (2)
  - ANAEMIA [None]
  - MULTIPLE MYELOMA [None]
